FAERS Safety Report 8176386-1 (Version None)
Quarter: 2012Q1

REPORT INFORMATION
  Report Type: 
  Country: None (occurrence: None)
  Receive Date: 20120301
  Receipt Date: 20120221
  Transmission Date: 20120608
  Serious: Yes (Other)
  Sender: FDA-Public Use
  Company Number: US-ASTRAZENECA-2011SE73439

PATIENT
  Age: 68 Year
  Sex: Male
  Weight: 97.5 kg

DRUGS (10)
  1. CRESTOR [Suspect]
     Route: 048
     Dates: start: 20110701, end: 20111201
  2. CRESTOR [Suspect]
     Dosage: EVERY MONDAY, WEDNES DAY AND FRIDAY
     Route: 048
  3. CRESTOR [Suspect]
     Route: 048
  4. HYZAAR [Concomitant]
     Indication: MYOCARDIAL INFARCTION
     Dosage: DAILY
     Route: 048
  5. HYDROCHLOROTHIAZIDE [Concomitant]
     Indication: MYOCARDIAL INFARCTION
     Route: 048
  6. LOPRESSOR [Concomitant]
     Indication: MYOCARDIAL INFARCTION
     Route: 048
  7. CRESTOR [Suspect]
     Dosage: ON THE OTHER DAYS
     Route: 048
  8. PLAVIX [Concomitant]
     Indication: MYOCARDIAL INFARCTION
     Route: 048
  9. CRESTOR [Suspect]
     Route: 048
     Dates: start: 20110701, end: 20111201
  10. CRESTOR [Suspect]
     Route: 048

REACTIONS (11)
  - HYPERHIDROSIS [None]
  - PARAESTHESIA [None]
  - PAIN IN EXTREMITY [None]
  - MYALGIA [None]
  - HYPOAESTHESIA [None]
  - INTERVERTEBRAL DISC DISORDER [None]
  - ASTHENIA [None]
  - EXERCISE TOLERANCE DECREASED [None]
  - MUSCULAR WEAKNESS [None]
  - INFARCTION [None]
  - LIMB DISCOMFORT [None]
